FAERS Safety Report 14600189 (Version 1)
Quarter: 2018Q1

REPORT INFORMATION
  Report Type: Report from Study
  Country: HK (occurrence: HK)
  Receive Date: 20180305
  Receipt Date: 20180305
  Transmission Date: 20180509
  Serious: Yes (Hospitalization)
  Sender: FDA-Public Use
  Company Number: HK-MYLANLABS-2018M1013800

PATIENT
  Age: 55 Year
  Sex: Female

DRUGS (1)
  1. HEPARIN [Suspect]
     Active Substance: HEPARIN SODIUM
     Indication: EXTRACORPOREAL MEMBRANE OXYGENATION
     Dosage: UNK
     Route: 065

REACTIONS (2)
  - Abdominal wall haematoma [Not Recovered/Not Resolved]
  - Hypotension [Not Recovered/Not Resolved]
